FAERS Safety Report 4932096-2 (Version None)
Quarter: 2006Q1

REPORT INFORMATION
  Report Type: 
  Country: None (occurrence: None)
  Receive Date: 20060303
  Receipt Date: 20050201
  Transmission Date: 20060701
  Serious: Yes (Hospitalization)
  Sender: FDA-Public Use
  Company Number: PHBS2005IT01846

PATIENT
  Age: 59 Year
  Sex: Male

DRUGS (4)
  1. ZOMETA [Suspect]
     Indication: BONE NEOPLASM MALIGNANT
     Dosage: 4 MG, QMO
     Route: 042
     Dates: start: 20021207, end: 20040929
  2. NEUPOGEN [Concomitant]
     Route: 065
  3. CARBOPLATINO [Concomitant]
     Route: 065
  4. VINORELBINE [Concomitant]
     Route: 065

REACTIONS (8)
  - ABSCESS JAW [None]
  - BONE DENSITY DECREASED [None]
  - FISTULA [None]
  - HYPERBARIC OXYGEN THERAPY [None]
  - OSTEONECROSIS [None]
  - OSTEOTOMY [None]
  - PNEUMOTHORAX [None]
  - SEQUESTRECTOMY [None]
